FAERS Safety Report 9787736 (Version 6)
Quarter: 2014Q2

REPORT INFORMATION
  Report Type: Report from Study
  Country: US (occurrence: US)
  Receive Date: 20131230
  Receipt Date: 20140401
  Transmission Date: 20141212
  Serious: Yes (Hospitalization)
  Sender: FDA-Public Use
  Company Number: US-JNJFOC-20131213791

PATIENT
  Age: 76 Year
  Sex: Female
  Weight: 77 kg

DRUGS (3)
  1. XARELTO [Suspect]
     Indication: CEREBROVASCULAR ACCIDENT PROPHYLAXIS
     Route: 048
     Dates: start: 20131024, end: 20131216
  2. XARELTO [Suspect]
     Indication: ATRIAL FIBRILLATION
     Route: 048
     Dates: start: 20131024, end: 20131216
  3. HYDRALAZINE [Concomitant]
     Indication: HYPERTENSION
     Route: 065

REACTIONS (4)
  - Gastrointestinal haemorrhage [Unknown]
  - Microcytic anaemia [Recovered/Resolved]
  - Dyspnoea exertional [Not Recovered/Not Resolved]
  - Polyp [Recovered/Resolved]
